FAERS Safety Report 4515237-0 (Version None)
Quarter: 2004Q4

REPORT INFORMATION
  Report Type: 
  Country: None (occurrence: None)
  Receive Date: 20041126
  Receipt Date: 20041111
  Transmission Date: 20050328
  Serious: Yes (Other)
  Sender: FDA-Public Use
  Company Number: 2004093743

PATIENT
  Age: 23 Year
  Sex: Female

DRUGS (3)
  1. DEPO-PROVERA [Suspect]
     Indication: CONTRACEPTION
     Dosage: SEE IMAGE
     Dates: start: 20031001, end: 20031001
  2. DEPO-PROVERA [Suspect]
     Indication: CONTRACEPTION
     Dosage: SEE IMAGE
     Dates: start: 20040722, end: 20040722
  3. LEVOTHYROXINE SODIUM [Concomitant]

REACTIONS (5)
  - DRUG INTERACTION [None]
  - HYPERTHYROIDISM [None]
  - HYPOTHYROIDISM [None]
  - MENORRHAGIA [None]
  - MENSTRUATION IRREGULAR [None]
